FAERS Safety Report 24565795 (Version 1)
Quarter: 2024Q4

REPORT INFORMATION
  Report Type: Spontaneous
  Country: US (occurrence: US)
  Receive Date: 20241030
  Receipt Date: 20241030
  Transmission Date: 20250114
  Serious: No
  Sender: PFIZER
  Company Number: US-PFIZER INC-PV202400139414

PATIENT
  Age: 69 Year

DRUGS (1)
  1. DOFETILIDE [Suspect]
     Active Substance: DOFETILIDE

REACTIONS (1)
  - Drug ineffective [Unknown]
